FAERS Safety Report 13305582 (Version 2)
Quarter: 2017Q2

REPORT INFORMATION
  Report Type: Spontaneous
  Country: US (occurrence: US)
  Receive Date: 20170308
  Receipt Date: 20170402
  Transmission Date: 20170830
  Serious: Yes (Hospitalization, Other)
  Sender: FDA-Public Use
  Company Number: US-FDC LIMITED-2017RIS00036

PATIENT
  Sex: Female

DRUGS (6)
  1. BRIMONIDINE [Suspect]
     Active Substance: BRIMONIDINE TARTRATE
     Dosage: 1 GTT, 2X/DAY
     Dates: end: 201701
  2. ZOCOR [Concomitant]
     Active Substance: SIMVASTATIN
     Dosage: 40 MG, 1X/DAY AT NIGHT
  3. BYDUREON [Concomitant]
     Active Substance: EXENATIDE
     Dosage: UNK, 1X/WEEK
  4. METFORMIN [Concomitant]
     Active Substance: METFORMIN HYDROCHLORIDE
     Dosage: 500 MG, 2X/DAY
  5. LOSARTAN. [Concomitant]
     Active Substance: LOSARTAN
     Dosage: UNK, 1X/DAY IN THE MORNING
  6. TIMOLOL MALEATE. [Suspect]
     Active Substance: TIMOLOL MALEATE
     Indication: GLAUCOMA
     Dosage: 1 DROP, 2X/DAY
     Dates: start: 2016, end: 2017

REACTIONS (6)
  - Glaucoma surgery [Recovered/Resolved]
  - Eye pruritus [Recovering/Resolving]
  - Ocular hyperaemia [Recovering/Resolving]
  - Corneal disorder [Recovering/Resolving]
  - Cataract operation [Unknown]
  - Visual impairment [Recovering/Resolving]

NARRATIVE: CASE EVENT DATE: 2016
